FAERS Safety Report 8290989-5 (Version None)
Quarter: 2012Q2

REPORT INFORMATION
  Report Type: 
  Country: None (occurrence: None)
  Receive Date: 20120417
  Receipt Date: 20110429
  Transmission Date: 20120825
  Serious: No
  Sender: FDA-Public Use
  Company Number: US-ASTRAZENECA-2011SE26139

PATIENT
  Age: 42 Year
  Sex: Female

DRUGS (1)
  1. NEXIUM [Suspect]
     Route: 048

REACTIONS (6)
  - INCORRECT DOSE ADMINISTERED [None]
  - DYSPEPSIA [None]
  - BACK PAIN [None]
  - ARTHRITIS [None]
  - ANXIETY [None]
  - MEMORY IMPAIRMENT [None]
